FAERS Safety Report 8166614-0 (Version None)
Quarter: 2012Q1

REPORT INFORMATION
  Report Type: 
  Country: None (occurrence: None)
  Receive Date: 20120227
  Receipt Date: 20120215
  Transmission Date: 20120608
  Serious: Yes (Other)
  Sender: FDA-Public Use
  Company Number: CN-JNJFOC-20120209033

PATIENT
  Age: 17 Year
  Sex: Male

DRUGS (1)
  1. REMICADE [Suspect]
     Indication: RHEUMATOID ARTHRITIS
     Route: 042
     Dates: start: 20120215, end: 20120215

REACTIONS (7)
  - ERYTHEMA OF EYELID [None]
  - VOMITING [None]
  - DYSPNOEA [None]
  - HEART RATE INCREASED [None]
  - PYREXIA [None]
  - DIZZINESS [None]
  - INFUSION RELATED REACTION [None]
